FAERS Safety Report 24070524 (Version 1)
Quarter: 2024Q3

REPORT INFORMATION
  Report Type: Report from Study
  Country: IT (occurrence: IT)
  Receive Date: 20240710
  Receipt Date: 20240710
  Transmission Date: 20241017
  Serious: No
  Sender: ROCHE
  Company Number: IT-ROCHE-3546163

PATIENT
  Age: 52 Year
  Sex: Female
  Weight: 70.0 kg

DRUGS (10)
  1. ALECTINIB [Suspect]
     Active Substance: ALECTINIB
     Indication: Non-small cell lung cancer metastatic
     Route: 048
     Dates: start: 20211118
  2. LANSOPRAZOLE [Concomitant]
     Active Substance: LANSOPRAZOLE
     Route: 048
  3. PREGABALIN [Concomitant]
     Active Substance: PREGABALIN
     Route: 048
  4. TIROSINT [Concomitant]
     Active Substance: LEVOTHYROXINE SODIUM
  5. CHOLECALCIFEROL [Concomitant]
     Active Substance: CHOLECALCIFEROL
  6. URSODIOL [Concomitant]
     Active Substance: URSODIOL
     Route: 048
     Dates: start: 20220804
  7. MONTMORILLONITE [Concomitant]
     Active Substance: MONTMORILLONITE
     Route: 048
     Dates: start: 20221124
  8. LOPERAMIDE [Concomitant]
     Active Substance: LOPERAMIDE
     Route: 048
     Dates: start: 20221124
  9. VITAMIN B1 [Concomitant]
     Active Substance: THIAMINE HYDROCHLORIDE
     Route: 048
     Dates: start: 20230504
  10. BIOTAD [Concomitant]
     Route: 048
     Dates: start: 20230629

REACTIONS (2)
  - Gastroenteritis [Recovered/Resolved]
  - Pharyngitis [Recovered/Resolved]

NARRATIVE: CASE EVENT DATE: 20240205
